FAERS Safety Report 5185546-3 (Version None)
Quarter: 2006Q4

REPORT INFORMATION
  Report Type: 
  Country: None (occurrence: None)
  Receive Date: 20061220
  Receipt Date: 20060807
  Transmission Date: 20070319
  Serious: No
  Sender: FDA-Public Use
  Company Number: US-GLAXOSMITHKLINE-A0615540A

PATIENT
  Age: 59 Year
  Sex: Male

DRUGS (3)
  1. NICODERM CQ [Suspect]
     Dates: start: 20060728, end: 20060807
  2. WELLBUTRIN [Concomitant]
  3. NORTRIPTYLINE HCL [Concomitant]

REACTIONS (1)
  - DIZZINESS [None]
